FAERS Safety Report 18944419 (Version 1)
Quarter: 2021Q1

REPORT INFORMATION
  Report Type: Report from Study
  Country: None (occurrence: US)
  Receive Date: 20210226
  Receipt Date: 20210226
  Transmission Date: 20210420
  Serious: Yes (Hospitalization)
  Sender: FDA-Public Use
  Company Number: US-ABBVIE-21K-163-3785586-00

PATIENT
  Sex: Male

DRUGS (1)
  1. HUMIRA [Suspect]
     Active Substance: ADALIMUMAB
     Indication: PRODUCT USED FOR UNKNOWN INDICATION
     Route: 058

REACTIONS (7)
  - Erythema [Unknown]
  - Urinary tract infection [Unknown]
  - Adverse drug reaction [Unknown]
  - Cardiac failure [Unknown]
  - Haemorrhage [Unknown]
  - Contusion [Unknown]
  - Platelet count decreased [Unknown]
